FAERS Safety Report 7296191-8 (Version None)
Quarter: 2011Q1

REPORT INFORMATION
  Report Type: 
  Country: None (occurrence: None)
  Receive Date: 20110204
  Receipt Date: 20110125
  Transmission Date: 20110831
  Serious: Yes (Hospitalization)
  Sender: FDA-Public Use
  Company Number: DSM-2011-00101

PATIENT
  Age: 52 Year
  Sex: Male

DRUGS (4)
  1. LYRICA [Suspect]
     Indication: DEPENDENCE
     Dosage: 300 MG,ORAL
     Route: 048
     Dates: start: 20101001
  2. BACLOFEN [Suspect]
     Indication: ALCOHOLISM
     Dosage: 10 TO 16 TABLETS/DAY, ORAL
     Route: 048
     Dates: start: 20101001
  3. ISOPTIN [Suspect]
     Indication: HYPERTENSION
     Dosage: ORAL
     Route: 048
     Dates: end: 20101001
  4. OLMETEC (OLMESARTAN MEDOXOMIL) (TABLET) (OLMESARTAN [Suspect]
     Indication: HYPERTENSION
     Dosage: ORAL
     Route: 048
     Dates: end: 20101001

REACTIONS (6)
  - HYPOTENSION [None]
  - ANURIA [None]
  - RENAL FAILURE ACUTE [None]
  - ALCOHOL POISONING [None]
  - PROSTATITIS [None]
  - DRUG INTERACTION [None]
